FAERS Safety Report 9341059 (Version 2)
Quarter: 2013Q3

REPORT INFORMATION
  Report Type: Spontaneous
  Country: US (occurrence: US)
  Receive Date: 20130610
  Receipt Date: 20130924
  Transmission Date: 20140515
  Serious: Yes (Hospitalization, Other)
  Sender: FDA-Public Use
  Company Number: US-ASTRAZENECA-2013SE40403

PATIENT
  Age: 76 Year
  Sex: Male
  Weight: 128.8 kg

DRUGS (18)
  1. METOPROLOL [Suspect]
     Indication: MYOCARDIAL INFARCTION
     Route: 048
  2. BRILINTA [Suspect]
     Indication: ANGINA UNSTABLE
     Dosage: 2-90 MG ONCE, LOADING DOSE
     Route: 048
     Dates: start: 20130320, end: 201305
  3. BRILINTA [Suspect]
     Indication: ACUTE CORONARY SYNDROME
     Dosage: 2-90 MG ONCE, LOADING DOSE
     Route: 048
     Dates: start: 20130320, end: 201305
  4. BRILINTA [Suspect]
     Indication: CAROTID ARTERY STENT INSERTION
     Dosage: 2-90 MG ONCE, LOADING DOSE
     Route: 048
     Dates: start: 20130320, end: 201305
  5. BRILINTA [Suspect]
     Indication: ANGINA UNSTABLE
     Route: 048
     Dates: start: 20130320
  6. BRILINTA [Suspect]
     Indication: ACUTE CORONARY SYNDROME
     Route: 048
     Dates: start: 20130320
  7. BRILINTA [Suspect]
     Indication: CAROTID ARTERY STENT INSERTION
     Route: 048
     Dates: start: 20130320
  8. BRILINTA [Suspect]
     Indication: ANGINA UNSTABLE
     Dosage: 2-90MG ONCE, AS LOADING DOSE
     Route: 048
     Dates: start: 201305, end: 201305
  9. BRILINTA [Suspect]
     Indication: ACUTE CORONARY SYNDROME
     Dosage: 2-90MG ONCE, AS LOADING DOSE
     Route: 048
     Dates: start: 201305, end: 201305
  10. BRILINTA [Suspect]
     Indication: CAROTID ARTERY STENT INSERTION
     Dosage: 2-90MG ONCE, AS LOADING DOSE
     Route: 048
     Dates: start: 201305, end: 201305
  11. BRILINTA [Suspect]
     Indication: ANGINA UNSTABLE
     Route: 048
     Dates: start: 201305
  12. BRILINTA [Suspect]
     Indication: ACUTE CORONARY SYNDROME
     Route: 048
     Dates: start: 201305
  13. BRILINTA [Suspect]
     Indication: CAROTID ARTERY STENT INSERTION
     Route: 048
     Dates: start: 201305
  14. ASPIRIN [Concomitant]
     Indication: ACUTE CORONARY SYNDROME
     Dosage: DAILY
     Dates: start: 201305
  15. ASPIRIN [Concomitant]
     Indication: ACUTE CORONARY SYNDROME
  16. UNSPECIFIED STATIN [Concomitant]
  17. AMLODIPINE [Concomitant]
  18. ATORVASTATIN [Concomitant]

REACTIONS (4)
  - Obesity [Unknown]
  - Angina unstable [Unknown]
  - Wheezing [Recovered/Resolved]
  - Dyspnoea [Recovered/Resolved]
